FAERS Safety Report 6656824-3 (Version None)
Quarter: 2010Q1

REPORT INFORMATION
  Report Type: 
  Country: None (occurrence: None)
  Receive Date: 20100325
  Receipt Date: 20100309
  Transmission Date: 20100710
  Serious: Yes (Hospitalization)
  Sender: FDA-Public Use
  Company Number: 2010AL000001

PATIENT
  Age: 68 Year
  Sex: Female
  Weight: 87.9978 kg

DRUGS (26)
  1. PRALATREXATE (PRALATREXATE) [Suspect]
     Indication: DIFFUSE LARGE B-CELL LYMPHOMA
     Dosage: 30 MG; QOW; IV
     Route: 042
     Dates: start: 20100125
  2. GEMCITABINE [Suspect]
     Dosage: 1200 MG; QOW; IV
     Route: 042
     Dates: start: 20100125
  3. ACICLOVIR (CON.) [Concomitant]
  4. ALBUTEROL (CON.) [Concomitant]
  5. CREON (CON.) [Concomitant]
  6. CLONIDIINE (CON.) [Concomitant]
  7. DIGOXIN (CON.) [Concomitant]
  8. DILTIAZEM (CON.) [Concomitant]
  9. FENOFIBRATE (CON.) [Concomitant]
  10. FLUTICASONE (CON.) [Concomitant]
  11. FOLIC ACID (CON.) [Concomitant]
  12. FUROSEMIDE (CON.) [Concomitant]
  13. LORAZEOAM (CON.) [Concomitant]
  14. METOPROLOL (CON.) [Concomitant]
  15. NIFEDIPINE (CON.) [Concomitant]
  16. OMEPRAZOLE (CON.) [Concomitant]
  17. ONDANSETRON (CON.) [Concomitant]
  18. K-DUR (CON.) [Concomitant]
  19. BACTRIM (CON.) [Concomitant]
  20. DIPHENDYDRAMINE-ACETAMINOPHEN (CON.) [Concomitant]
  21. VITAMIN D (CON.) [Concomitant]
  22. ERGOCALCIFEROL (CON.) [Concomitant]
  23. LORATADINE (CON.) [Concomitant]
  24. MAGNESIUM (CON.) [Concomitant]
  25. OMEGA 3 FATTY ACIDS (CON.) [Concomitant]
  26. PREV MEDS [Concomitant]

REACTIONS (3)
  - DYSPHAGIA [None]
  - ORAL CANDIDIASIS [None]
  - THROMBOCYTOPENIA [None]
